FAERS Safety Report 8348888-6 (Version None)
Quarter: 2012Q2

REPORT INFORMATION
  Report Type: 
  Country: None (occurrence: None)
  Receive Date: 20120508
  Receipt Date: 20120503
  Transmission Date: 20120825
  Serious: Yes (Hospitalization)
  Sender: FDA-Public Use
  Company Number: 2011SP030598

PATIENT
  Age: 21 Year
  Sex: Female
  Weight: 95.2554 kg

DRUGS (1)
  1. NUVARING [Suspect]
     Indication: CONTRACEPTION
     Dates: start: 20081001, end: 20090701

REACTIONS (26)
  - PULMONARY EMBOLISM [None]
  - NAUSEA [None]
  - AMENORRHOEA [None]
  - MUSCULOSKELETAL PAIN [None]
  - PAIN [None]
  - BACK PAIN [None]
  - WEIGHT INCREASED [None]
  - DEVICE EXPULSION [None]
  - URINARY TRACT INFECTION [None]
  - ALOPECIA [None]
  - ASTHENIA [None]
  - DEVICE FAILURE [None]
  - DRUG DOSE OMISSION [None]
  - PELVIC INFLAMMATORY DISEASE [None]
  - DEEP VEIN THROMBOSIS [None]
  - MUSCLE SPASMS [None]
  - RENAL PAIN [None]
  - CHEST PAIN [None]
  - DRUG LEVEL BELOW THERAPEUTIC [None]
  - GROIN PAIN [None]
  - MALAISE [None]
  - SURGICAL FAILURE [None]
  - ROAD TRAFFIC ACCIDENT [None]
  - PLEURISY [None]
  - PAIN IN EXTREMITY [None]
  - ANAEMIA [None]
